FAERS Safety Report 10716820 (Version 1)
Quarter: 2015Q1

REPORT INFORMATION
  Report Type: Spontaneous
  Country: IT (occurrence: IT)
  Receive Date: 20150116
  Receipt Date: 20150116
  Transmission Date: 20150721
  Serious: Yes (Other)
  Sender: FDA-Public Use
  Company Number: IT-PFIZER INC-2015014338

PATIENT
  Age: 77 Year
  Sex: Female

DRUGS (3)
  1. NORVASC [Suspect]
     Active Substance: AMLODIPINE BESYLATE
     Indication: ESSENTIAL HYPERTENSION
     Dosage: 10 MG, 2X/DAY (SINCE ABOUT 7-8 YEARS)
     Route: 048
  2. IGROTON [Concomitant]
     Active Substance: CHLORTHALIDONE
     Indication: ESSENTIAL HYPERTENSION
     Dosage: SINCE SEVERAL YEARS
  3. INSULIN [Concomitant]
     Active Substance: INSULIN NOS
     Indication: DIABETES MELLITUS
     Dosage: 1000 MG, 4X/DAY (SINCE ABOUT 1 YEAR)
     Route: 058

REACTIONS (3)
  - Purpura [Not Recovered/Not Resolved]
  - Eye haemorrhage [Not Recovered/Not Resolved]
  - Diplopia [Not Recovered/Not Resolved]
